FAERS Safety Report 11817832 (Version 3)
Quarter: 2016Q1

REPORT INFORMATION
  Report Type: Spontaneous
  Country: US (occurrence: US)
  Receive Date: 20151210
  Receipt Date: 20160219
  Transmission Date: 20160525
  Serious: Yes (Other)
  Sender: FDA-Public Use
  Company Number: US-JNJFOC-20151126454

PATIENT
  Age: 13 Year
  Sex: Male
  Weight: 66.68 kg

DRUGS (2)
  1. RISPERIDONE. [Suspect]
     Active Substance: RISPERIDONE
     Indication: OPPOSITIONAL DEFIANT DISORDER
     Dosage: DOSE: 1-2MG
     Route: 048
     Dates: start: 20091117, end: 2011
  2. RISPERIDONE. [Suspect]
     Active Substance: RISPERIDONE
     Indication: ATTENTION DEFICIT/HYPERACTIVITY DISORDER
     Dosage: DOSE: 1-2MG
     Route: 048
     Dates: start: 20091117, end: 2011

REACTIONS (6)
  - Obesity [Unknown]
  - Product use issue [Unknown]
  - Gynaecomastia [Unknown]
  - Sleep disorder [Unknown]
  - Off label use [Unknown]
  - Emotional distress [Unknown]

NARRATIVE: CASE EVENT DATE: 20091117
